FAERS Safety Report 8184745 (Version 2)
Quarter: 2014Q2

REPORT INFORMATION
  Report Type: Spontaneous
  Country: US (occurrence: US)
  Receive Date: 20111018
  Receipt Date: 20140523
  Transmission Date: 20141212
  Serious: Yes (Hospitalization)
  Sender: FDA-Public Use
  Company Number: US-JNJFOC-20100803434

PATIENT
  Age: 43 Year
  Sex: Female
  Weight: 113.4 kg

DRUGS (12)
  1. REMICADE [Suspect]
     Indication: CROHN^S DISEASE
     Route: 042
     Dates: start: 20140512
  2. REMICADE [Suspect]
     Indication: CROHN^S DISEASE
     Route: 042
     Dates: start: 200908
  3. REMICADE [Suspect]
     Indication: CROHN^S DISEASE
     Route: 042
     Dates: start: 200907
  4. REMICADE [Suspect]
     Indication: CROHN^S DISEASE
     Route: 042
     Dates: start: 200909
  5. PREDNISONE [Concomitant]
     Indication: CROHN^S DISEASE
  6. CYMBALTA [Concomitant]
  7. XANAX [Concomitant]
  8. NEXIUM [Concomitant]
  9. PRED FORTE [Concomitant]
  10. SYSTANE [Concomitant]
     Route: 047
  11. BENTYL [Concomitant]
  12. PAIN MEDICATION NOS [Concomitant]

REACTIONS (14)
  - Glaucoma [Unknown]
  - X-ray abnormal [Not Recovered/Not Resolved]
  - Meniscus injury [Not Recovered/Not Resolved]
  - Abscess intestinal [Recovered/Resolved]
  - Neuropathy peripheral [Not Recovered/Not Resolved]
  - Corneal disorder [Unknown]
  - Ovarian cyst [Unknown]
  - Arthropathy [Unknown]
  - Stress urinary incontinence [Unknown]
  - Urethral disorder [Unknown]
  - Hyperhidrosis [Not Recovered/Not Resolved]
  - Burning sensation [Not Recovered/Not Resolved]
  - Pain in extremity [Not Recovered/Not Resolved]
  - Arthralgia [Not Recovered/Not Resolved]
